FAERS Safety Report 23916484 (Version 1)
Quarter: 2024Q2

REPORT INFORMATION
  Report Type: Spontaneous
  Country: US (occurrence: US)
  Receive Date: 20240529
  Receipt Date: 20240529
  Transmission Date: 20240716
  Serious: Yes (Life-Threatening, Hospitalization)
  Sender: FDA-Public Use
  Company Number: US-JNJFOC-20240567591

PATIENT
  Age: 15 Year
  Sex: Male

DRUGS (1)
  1. ACETAMINOPHEN [Suspect]
     Active Substance: ACETAMINOPHEN
     Indication: Product used for unknown indication
     Dosage: APPROX 195 GRAM
     Route: 048

REACTIONS (5)
  - Hypertransaminasaemia [Recovering/Resolving]
  - Mental impairment [Recovering/Resolving]
  - Blood lactic acid increased [Recovering/Resolving]
  - International normalised ratio increased [Recovered/Resolved]
  - Intentional overdose [Unknown]
